FAERS Safety Report 20729252 (Version 1)
Quarter: 2022Q2

REPORT INFORMATION
  Report Type: Spontaneous
  Country: US (occurrence: None)
  Receive Date: 20220419
  Receipt Date: 20220419
  Transmission Date: 20220721
  Serious: No
  Sender: FDA-Public Use
  Company Number: None

PATIENT
  Age: 61 Year
  Sex: Female
  Weight: 70.31 kg

DRUGS (2)
  1. CALCIPOTRIENE [Suspect]
     Active Substance: CALCIPOTRIENE
     Indication: Psoriatic arthropathy
     Dosage: OTHER FREQUENCY : DAILY M0NDAY-FRIDA;?
     Route: 061
     Dates: start: 202006
  2. CALCIPOTRIENE [Suspect]
     Active Substance: CALCIPOTRIENE
     Indication: Psoriasis

REACTIONS (3)
  - Dyspnoea [None]
  - Thrombosis [None]
  - Activated partial thromboplastin time prolonged [None]
